FAERS Safety Report 9514707 (Version 1)
Quarter: 2013Q1

REPORT INFORMATION
  Report Type: Spontaneous
  Country: US (occurrence: None)
  Receive Date: 20130305
  Receipt Date: 20130305
  Transmission Date: 20140127
  Serious: Yes (Other)
  Sender: FDA-Public Use
  Company Number: 163-21880-12112767

PATIENT
  Age: 64 Year
  Sex: Female
  Weight: 104.78 kg

DRUGS (9)
  1. REVLIMID (LENALIDOMIDE) (25 MILLIGRAM, CAPSULES) [Suspect]
     Indication: PLASMA CELL MYELOMA
     Dosage: 1 IN 1 D
     Route: 048
  2. COUMADIN (WARFARIN SODIUM) (TABLETS) [Concomitant]
  3. DEXAMETHASONE (DEXAMETHASONE) (TABLETS) [Concomitant]
  4. KLOR-CON M20 (POTASSIUM CHLORIDE) (UNKNOWN) [Concomitant]
  5. LEXAPRO (ESCITALOPRAM OXALTE) (TABLETS) [Concomitant]
  6. NITROSTAT (CLYCERYL TRINITRATE) (TABLETS) [Concomitant]
  7. PROTONIX (PANTOPRAZOLE SODIUM) (TABLETS) [Concomitant]
  8. TEMAZEPAM (TEMAZEPAM) (CAPSULES) [Concomitant]
  9. VITAMIN C (ASCORBIC ACID ) (TABLETS) [Concomitant]

REACTIONS (1)
  - Skin infection [None]
